FAERS Safety Report 7089421-9 (Version None)
Quarter: 2010Q4

REPORT INFORMATION
  Report Type: 
  Country: None (occurrence: None)
  Receive Date: 20101108
  Receipt Date: 20101101
  Transmission Date: 20110411
  Serious: Yes (Hospitalization, Other)
  Sender: FDA-Public Use
  Company Number: GB-B.I. PHARMACEUTICALS,INC./RIDGEFIELD-2010-UK-01040UK

PATIENT

DRUGS (1)
  1. PRADAXA [Suspect]
     Indication: HIP ARTHROPLASTY

REACTIONS (2)
  - ARTHRALGIA [None]
  - HAEMATOMA [None]
